FAERS Safety Report 7655002-9 (Version None)
Quarter: 2011Q3

REPORT INFORMATION
  Report Type: 
  Country: None (occurrence: None)
  Receive Date: 20110804
  Receipt Date: 20110727
  Transmission Date: 20111222
  Serious: Yes (Other)
  Sender: FDA-Public Use
  Company Number: PHHY2011KR67703

PATIENT

DRUGS (1)
  1. ZOMETA [Suspect]
     Dosage: UNK
     Route: 042
     Dates: start: 20090101

REACTIONS (1)
  - OSTEONECROSIS OF JAW [None]
